FAERS Safety Report 11925255 (Version 1)
Quarter: 2016Q1

REPORT INFORMATION
  Report Type: Report from Study
  Country: FR (occurrence: FR)
  Receive Date: 20160118
  Receipt Date: 20160118
  Transmission Date: 20160526
  Serious: Yes (Hospitalization)
  Sender: FDA-Public Use
  Company Number: FR-ABBVIE-13P-056-1063744-00

PATIENT
  Sex: Male

DRUGS (13)
  1. HUMIRA [Suspect]
     Active Substance: ADALIMUMAB
     Dosage: (WEEK 2)
     Route: 058
  2. TRIMEBUTINE [Concomitant]
     Active Substance: TRIMEBUTINE
     Indication: ABDOMINAL PAIN
     Dates: start: 20090915
  3. IXPRIM [Concomitant]
     Active Substance: ACETAMINOPHEN\TRAMADOL HYDROCHLORIDE
     Indication: PAIN
     Dates: start: 20090915
  4. HUMIRA [Suspect]
     Active Substance: ADALIMUMAB
     Indication: CROHN^S DISEASE
     Dosage: (BASELINE)
     Route: 058
     Dates: start: 20090629, end: 20090629
  5. HUMIRA [Suspect]
     Active Substance: ADALIMUMAB
     Route: 058
  6. HUMIRA [Suspect]
     Active Substance: ADALIMUMAB
     Route: 058
     Dates: start: 20090917, end: 20100412
  7. LOPERAMIDE SANDOZ [Concomitant]
     Active Substance: LOPERAMIDE
     Indication: DIARRHOEA
     Dates: start: 20090915
  8. VISCERALGINE [Concomitant]
     Indication: ABDOMINAL PAIN
     Dates: start: 20090915
  9. REMICADE [Concomitant]
     Active Substance: INFLIXIMAB
     Dates: start: 20100713
  10. SMECTA [Concomitant]
     Active Substance: MONTMORILLONITE
     Indication: DIARRHOEA
     Dates: start: 20090915
  11. VOGALENE [Concomitant]
     Active Substance: METOPIMAZINE
     Indication: NAUSEA
     Dates: start: 20090915
  12. CORTANCYL [Concomitant]
     Active Substance: PREDNISONE
     Indication: CROHN^S DISEASE
     Dates: start: 20100414
  13. REMICADE [Concomitant]
     Active Substance: INFLIXIMAB
     Indication: CROHN^S DISEASE
     Dates: end: 200905

REACTIONS (1)
  - Small intestinal perforation [Unknown]

NARRATIVE: CASE EVENT DATE: 20101213
